FAERS Safety Report 10164739 (Version 1)
Quarter: 2014Q2

REPORT INFORMATION
  Report Type: Spontaneous
  Country: US (occurrence: US)
  Receive Date: 20140510
  Receipt Date: 20140510
  Transmission Date: 20141212
  Serious: No
  Sender: FDA-Public Use
  Company Number: US-BRISTOL-MYERS SQUIBB COMPANY-19595792

PATIENT
  Age: 65 Year
  Sex: Male
  Weight: 113.38 kg

DRUGS (4)
  1. BYDUREON [Suspect]
     Indication: TYPE 2 DIABETES MELLITUS
  2. METFORMIN HCL [Suspect]
     Dosage: 1DF:500 UNITS NOS
  3. GLUCOTROL XL [Suspect]
  4. GLIPIZIDE [Suspect]

REACTIONS (2)
  - Blood glucose increased [Unknown]
  - Injection site nodule [Unknown]
